FAERS Safety Report 5802053-2 (Version None)
Quarter: 2008Q3

REPORT INFORMATION
  Report Type: 
  Country: None (occurrence: None)
  Receive Date: 20080707
  Receipt Date: 20080625
  Transmission Date: 20090109
  Serious: Yes (Death, Hospitalization)
  Sender: FDA-Public Use
  Company Number: SK-PFIZER INC-2006126231

PATIENT
  Sex: Male
  Weight: 72 kg

DRUGS (8)
  1. SU-011,248 [Suspect]
     Indication: RENAL CANCER
     Route: 048
  2. BUPRENORPHINE HCL [Concomitant]
     Route: 062
  3. CLODRONATE DISODIUM [Concomitant]
     Route: 048
     Dates: start: 20051029
  4. TRAMADOL HCL [Concomitant]
     Route: 048
     Dates: start: 20051130
  5. LACTULOSE [Concomitant]
     Route: 048
     Dates: start: 20051206, end: 20060201
  6. VASOCARDIN [Concomitant]
     Route: 048
     Dates: start: 20060106
  7. NADROPARIN [Concomitant]
     Route: 058
     Dates: start: 20060217
  8. MORPHINE [Concomitant]
     Route: 048
     Dates: start: 20060123

REACTIONS (3)
  - DEHYDRATION [None]
  - DIARRHOEA [None]
  - RENAL FAILURE [None]
